FAERS Safety Report 4848937-3 (Version None)
Quarter: 2005Q4

REPORT INFORMATION
  Report Type: 
  Country: None (occurrence: None)
  Receive Date: 20051208
  Receipt Date: 20051201
  Transmission Date: 20060501
  Serious: Yes (Hospitalization, Disabling)
  Sender: FDA-Public Use
  Company Number: US-MERCK-0512USA00530

PATIENT
  Age: 73 Year
  Sex: Female
  Weight: 72 kg

DRUGS (35)
  1. VIOXX [Suspect]
     Indication: ARTHRITIS
     Route: 048
     Dates: start: 20021120, end: 20040501
  2. ZOCOR [Concomitant]
     Route: 065
  3. NORVASC [Concomitant]
     Route: 065
  4. LIPITOR [Concomitant]
     Route: 065
  5. PLAVIX [Concomitant]
     Route: 065
  6. SYNTHROID [Concomitant]
     Route: 065
  7. PROMETHAZINE [Concomitant]
     Route: 065
  8. ZITHROMAX [Concomitant]
     Route: 065
  9. COMBIVENT [Concomitant]
     Route: 065
  10. LEVOTHROID [Concomitant]
     Route: 065
  11. ADVAIR DISKUS 100/50 [Concomitant]
     Route: 065
  12. EFFEXOR [Concomitant]
     Route: 065
  13. PREDNISONE [Concomitant]
     Route: 065
  14. NYSTATIN USP (PADDOCK) [Concomitant]
     Route: 065
  15. DIFLUCAN [Concomitant]
     Route: 065
  16. NEURONTIN [Concomitant]
     Route: 065
  17. VALTREX [Concomitant]
     Route: 065
  18. LEVAQUIN [Concomitant]
     Route: 065
  19. XOPENEX [Concomitant]
     Route: 065
  20. AVANDIA [Concomitant]
     Route: 065
  21. TOBRAMYCIN [Concomitant]
     Route: 047
  22. SINGULAIR [Concomitant]
     Route: 065
  23. PRAVACHOL [Concomitant]
     Route: 065
  24. ALPRAZOLAM [Concomitant]
     Route: 065
  25. CYCLOBENZAPRINE HYDROCHLORIDE [Concomitant]
     Route: 065
  26. NEXIUM [Concomitant]
     Route: 065
  27. VICOPROFEN [Concomitant]
     Route: 065
  28. ZOLOFT [Concomitant]
     Route: 065
  29. LEVOXYL [Concomitant]
     Route: 065
  30. ALTACE [Concomitant]
     Route: 065
  31. FUROSEMIDE [Concomitant]
     Route: 065
  32. POTASSIUM (UNSPECIFIED) [Concomitant]
     Route: 065
  33. HYDROCODONE BITARTRATE [Concomitant]
     Route: 065
  34. ASACOL [Concomitant]
     Route: 065
  35. CEFUROXIME AXETIL [Concomitant]
     Route: 065

REACTIONS (10)
  - AORTIC VALVE INCOMPETENCE [None]
  - AORTIC VALVE STENOSIS [None]
  - ATRIAL FIBRILLATION [None]
  - CARDIAC FAILURE CONGESTIVE [None]
  - CLOSTRIDIAL INFECTION [None]
  - ERUCTATION [None]
  - HAEMORRHAGE [None]
  - MITRAL VALVE INCOMPETENCE [None]
  - PNEUMONIA [None]
  - POSTOPERATIVE INFECTION [None]
